FAERS Safety Report 4312986-4 (Version None)
Quarter: 2004Q1

REPORT INFORMATION
  Report Type: 
  Country: None (occurrence: None)
  Receive Date: 20040224
  Receipt Date: 20040205
  Transmission Date: 20041129
  Serious: Yes (Hospitalization)
  Sender: FDA-Public Use
  Company Number: 2004-00447

PATIENT
  Age: 71 Year
  Sex: Male

DRUGS (3)
  1. IMMUCYST (BCG - IT (CONNAUGHT)), AVENTIS PASTEUR LTD., C1342AB, NR [Suspect]
     Indication: BLADDER CANCER
     Dosage: I.VES., BLADDER
     Route: 042
     Dates: start: 20030902
  2. OFLOCET [Concomitant]
  3. PLACEBO OFLOCET [Concomitant]

REACTIONS (3)
  - HAEMODIALYSIS [None]
  - HENOCH-SCHONLEIN PURPURA [None]
  - RENAL FAILURE [None]
